FAERS Safety Report 4384887-7 (Version None)
Quarter: 2004Q2

REPORT INFORMATION
  Report Type: 
  Country: None (occurrence: None)
  Receive Date: 20040622
  Receipt Date: 20040409
  Transmission Date: 20050107
  Serious: Yes (Other)
  Sender: FDA-Public Use
  Company Number: JP-JNJFOC-20040604497

PATIENT
  Age: 56 Year
  Sex: Male

DRUGS (9)
  1. REMICADE [Suspect]
     Indication: RHEUMATOID ARTHRITIS
     Dosage: 171 MG, INTRAVENOUS
     Route: 042
     Dates: start: 20031205
  2. REMICADE [Suspect]
     Indication: RHEUMATOID ARTHRITIS
     Dosage: 171 MG, INTRAVENOUS
     Route: 042
     Dates: start: 20031219
  3. REMICADE [Suspect]
     Indication: RHEUMATOID ARTHRITIS
     Dosage: 171 MG, INTRAVENOUS
     Route: 042
     Dates: start: 20040116
  4. REMICADE [Suspect]
     Indication: RHEUMATOID ARTHRITIS
     Dosage: 171 MG, INTRAVENOUS
     Route: 042
     Dates: start: 20040409
  5. ETODOLAC [Concomitant]
  6. FOLIC ACID [Concomitant]
  7. METHOTREXATE [Concomitant]
  8. PREDNISOLONE [Concomitant]
  9. SODIUM RISEDRONATE HYDRATE (RISEDRONATE SODIUM) [Concomitant]

REACTIONS (1)
  - MYCOBACTERIUM AVIUM COMPLEX INFECTION [None]
